FAERS Safety Report 6313560-0 (Version None)
Quarter: 2009Q3

REPORT INFORMATION
  Report Type: 
  Country: None (occurrence: None)
  Receive Date: 20090814
  Receipt Date: 20090814
  Transmission Date: 20100115
  Serious: Yes (Hospitalization)
  Sender: FDA-Public Use
  Company Number: None

PATIENT
  Sex: Male
  Weight: 70 kg

DRUGS (4)
  1. CISPLATIN [Suspect]
     Dosage: 188 MG
  2. ETOPOSIDE [Suspect]
     Dosage: 300 MG
  3. GEMCITABINE HCL [Suspect]
     Dosage: 1880 MG
  4. METHYLPREDNISOLONE [Suspect]
     Dosage: 1000 MG

REACTIONS (12)
  - BLOOD BILIRUBIN INCREASED [None]
  - BLOOD GLUCOSE INCREASED [None]
  - BLOOD MAGNESIUM DECREASED [None]
  - BLOOD PHOSPHORUS INCREASED [None]
  - DEHYDRATION [None]
  - DIZZINESS POSTURAL [None]
  - ERYTHEMA [None]
  - HEADACHE [None]
  - HYPONATRAEMIA [None]
  - HYPOPHAGIA [None]
  - NAUSEA [None]
  - ORAL CANDIDIASIS [None]
